FAERS Safety Report 10923919 (Version 2)
Quarter: 2015Q2

REPORT INFORMATION
  Report Type: Spontaneous
  Country: US (occurrence: US)
  Receive Date: 20150318
  Receipt Date: 20150601
  Transmission Date: 20150821
  Serious: Yes (Hospitalization)
  Sender: FDA-Public Use
  Company Number: US-BIOGENIDEC-2015BI033156

PATIENT
  Age: 65 Year
  Sex: Male

DRUGS (1)
  1. TECFIDERA [Suspect]
     Active Substance: DIMETHYL FUMARATE
     Indication: RELAPSING-REMITTING MULTIPLE SCLEROSIS
     Dates: start: 20150309

REACTIONS (9)
  - Dyspnoea [Unknown]
  - Pulmonary oedema [Unknown]
  - Pneumonia [Unknown]
  - Lung infection [Unknown]
  - Septic shock [Unknown]
  - Cardiac failure congestive [Unknown]
  - Urinary retention [Unknown]
  - Cystitis [Unknown]
  - Sepsis [Unknown]
